FAERS Safety Report 25083094 (Version 1)
Quarter: 2025Q1

REPORT INFORMATION
  Report Type: Spontaneous
  Country: US (occurrence: US)
  Receive Date: 20250317
  Receipt Date: 20250317
  Transmission Date: 20250409
  Serious: No
  Sender: ELI LILLY AND COMPANY
  Company Number: US-ELI_LILLY_AND_COMPANY-US202503010399

PATIENT
  Age: 44 Year
  Sex: Female

DRUGS (1)
  1. VERZENIO [Suspect]
     Active Substance: ABEMACICLIB
     Indication: Breast cancer female
     Dosage: 50 MG, BID
     Route: 048

REACTIONS (7)
  - Lacrimation increased [Recovered/Resolved]
  - Muscle spasms [Unknown]
  - Neck pain [Unknown]
  - Myalgia [Unknown]
  - Hypoaesthesia [Unknown]
  - Arthralgia [Unknown]
  - Alopecia [Unknown]

NARRATIVE: CASE EVENT DATE: 20230101
